FAERS Safety Report 19206875 (Version 3)
Quarter: 2021Q2

REPORT INFORMATION
  Report Type: Report from Study
  Country: RU (occurrence: RU)
  Receive Date: 20210430
  Receipt Date: 20210513
  Transmission Date: 20210717
  Serious: Yes (Hospitalization, Other)
  Sender: FDA-Public Use
  Company Number: NVSC2021RU094795

PATIENT
  Age: 40 Year
  Sex: Male
  Weight: 59 kg

DRUGS (6)
  1. AIN457 [Suspect]
     Active Substance: SECUKINUMAB
     Dosage: 10.9 ML, Q4W
     Route: 042
     Dates: start: 20210511
  2. NIMESULIDE [Concomitant]
     Active Substance: NIMESULIDE
     Indication: SPONDYLITIS
     Dosage: UNK
     Route: 065
     Dates: start: 20190523
  3. PLACEBO [Suspect]
     Active Substance: UNSPECIFIED INGREDIENT
     Indication: SPINAL OSTEOARTHRITIS
     Dosage: UNK
     Route: 042
     Dates: start: 20201014
  4. AIN457 [Suspect]
     Active Substance: SECUKINUMAB
     Indication: SPINAL OSTEOARTHRITIS
     Dosage: 11.0 ML, QMO
     Route: 042
     Dates: start: 20210303, end: 20210331
  5. OMEPRAZOLE. [Concomitant]
     Active Substance: OMEPRAZOLE
     Indication: GENERAL PHYSICAL CONDITION
     Dosage: UNK
     Route: 065
     Dates: start: 20180815
  6. CALCIUM [Concomitant]
     Active Substance: CALCIUM
     Indication: SPONDYLITIS
     Dosage: UNK
     Route: 065
     Dates: start: 20181018

REACTIONS (1)
  - Parainfluenzae virus infection [Recovered/Resolved]

NARRATIVE: CASE EVENT DATE: 20210425
